FAERS Safety Report 20564635 (Version 1)
Quarter: 2022Q1

REPORT INFORMATION
  Report Type: Spontaneous
  Country: DE (occurrence: DE)
  Receive Date: 20220308
  Receipt Date: 20220308
  Transmission Date: 20220423
  Serious: Yes (Congenital Anomaly, Other)
  Sender: FDA-Public Use
  Company Number: DE-EMBRYOTOX-202102546

PATIENT
  Age: 3 Week
  Sex: Male
  Weight: 3.8 kg

DRUGS (4)
  1. VENLAFAXINE [Suspect]
     Active Substance: VENLAFAXINE HYDROCHLORIDE
     Indication: Depression
     Dosage: 225 [MG/D (UP TO 150) ], UNIT DOSE: 225 MG, 0. - 38. GESTATIONAL WEEK
     Route: 064
     Dates: start: 20201118
  2. VENLAFAXINE [Suspect]
     Active Substance: VENLAFAXINE HYDROCHLORIDE
     Dosage: DOSAGE WAS REDUCED TO 150 MG/D AT GW 32 3/7, UNIT DOSE : 150 MG, 0. - 38. GESTATIONAL WEEK
     Route: 064
     Dates: end: 20210811
  3. MISOPROSTOL [Concomitant]
     Active Substance: MISOPROSTOL
     Indication: Labour induction
     Dosage: TRIMESTER: INTRAPARTUM
     Route: 064
  4. LEVOTHYROXINE SODIUM [Concomitant]
     Active Substance: LEVOTHYROXINE SODIUM
     Indication: Hypothyroidism
     Dosage: 100 MICROGRAM DAILY; 100, 0. - 38. GESTATIONAL WEEK
     Route: 064
     Dates: start: 20201118, end: 20210811

REACTIONS (4)
  - Congenital megaureter [Unknown]
  - Pyelonephritis [Recovered/Resolved]
  - Poor weight gain neonatal [Recovered/Resolved]
  - Foetal exposure during pregnancy [Unknown]
